FAERS Safety Report 4815576-X (Version None)
Quarter: 2005Q4

REPORT INFORMATION
  Report Type: 
  Country: None (occurrence: None)
  Receive Date: 20051027
  Receipt Date: 20051027
  Transmission Date: 20060501
  Serious: No
  Sender: FDA-Public Use
  Company Number: None

PATIENT

DRUGS (1)
  1. MORPHINE SULFATE LIQ 20 MG /ML ETHER [Suspect]
     Dosage: 20 MG /ML LIQUID

REACTIONS (1)
  - MEDICATION ERROR [None]
